FAERS Safety Report 11661329 (Version 3)
Quarter: 2015Q4

REPORT INFORMATION
  Report Type: Spontaneous
  Country: US (occurrence: None)
  Receive Date: 20151026
  Receipt Date: 20151111
  Transmission Date: 20160304
  Serious: Yes (Other)
  Sender: FDA-Public Use
  Company Number: US-MDT-ADR-2015-02025

PATIENT
  Age: 71 Year
  Sex: Male

DRUGS (2)
  1. BACLOFEN INTRATHECAL - 10 MCG/ML [Suspect]
     Active Substance: BACLOFEN
     Indication: PAIN
     Dosage: 5.4 MCG/DAY
  2. MORPHINE INTRATHECAL - 20 MG/ML [Suspect]
     Active Substance: MORPHINE
     Indication: BACK PAIN
     Dosage: 10 MG/DAY

REACTIONS (1)
  - Pain [None]
